FAERS Safety Report 7609840-9 (Version None)
Quarter: 2011Q3

REPORT INFORMATION
  Report Type: 
  Country: None (occurrence: None)
  Receive Date: 20110714
  Receipt Date: 20110703
  Transmission Date: 20111222
  Serious: Yes (Death)
  Sender: FDA-Public Use
  Company Number: US-BAXTER-2011BH022053

PATIENT

DRUGS (22)
  1. CYCLOPHOSPHAMIDE [Suspect]
     Indication: BURKITT'S LEUKAEMIA
     Route: 065
  2. DOXORUBICIN HCL [Suspect]
     Indication: BURKITT'S LEUKAEMIA
     Route: 065
  3. CYTARABINE [Suspect]
     Indication: BURKITT'S LEUKAEMIA
     Dosage: DOSE UNIT:GRAMS PER METERS SQUARED
     Route: 065
  4. VINCRISTINE [Suspect]
     Indication: BURKITT'S LYMPHOMA
     Route: 065
  5. METHOTREXATE [Suspect]
     Indication: BURKITT'S LEUKAEMIA
     Dosage: DOSE UNIT:GRAMS PER METERS SQUARED
     Route: 065
  6. DEXAMETHASONE [Suspect]
     Indication: BURKITT'S LYMPHOMA
     Route: 065
  7. FILGRASTIM [Suspect]
     Indication: BURKITT'S LEUKAEMIA
     Route: 058
  8. FILGRASTIM [Suspect]
     Indication: BURKITT'S LYMPHOMA
     Route: 058
  9. PREDNISONE [Suspect]
     Indication: BURKITT'S LEUKAEMIA
     Dosage: DOSE UNIT:MILLION UNITS PER METERS SQUARED
     Route: 065
  10. CYTARABINE [Suspect]
     Indication: BURKITT'S LYMPHOMA
     Dosage: DOSE UNIT:GRAMS PER METERS SQUARED
     Route: 065
  11. CYCLOPHOSPHAMIDE [Suspect]
     Indication: BURKITT'S LYMPHOMA
     Route: 065
  12. IFOSFAMIDE [Suspect]
     Indication: BURKITT'S LEUKAEMIA
     Route: 065
  13. IFOSFAMIDE [Suspect]
     Indication: BURKITT'S LYMPHOMA
     Route: 065
  14. PREDNISONE [Suspect]
     Indication: BURKITT'S LYMPHOMA
     Dosage: DOSE UNIT:MILLION UNITS PER METERS SQUARED
     Route: 065
  15. ETOPOSIDE [Suspect]
     Indication: BURKITT'S LYMPHOMA
     Route: 065
  16. VINCRISTINE [Suspect]
     Indication: BURKITT'S LEUKAEMIA
     Route: 065
  17. DOXORUBICIN HCL [Suspect]
     Indication: BURKITT'S LYMPHOMA
     Route: 065
  18. RITUXIMAB [Suspect]
     Indication: BURKITT'S LEUKAEMIA
     Route: 065
  19. RITUXIMAB [Suspect]
     Indication: BURKITT'S LYMPHOMA
     Route: 065
  20. METHOTREXATE [Suspect]
     Indication: BURKITT'S LYMPHOMA
     Dosage: DOSE UNIT:GRAMS PER METERS SQUARED
     Route: 065
  21. ETOPOSIDE [Suspect]
     Indication: BURKITT'S LEUKAEMIA
     Route: 065
  22. DEXAMETHASONE [Suspect]
     Indication: BURKITT'S LEUKAEMIA
     Route: 065

REACTIONS (1)
  - CEREBRAL HAEMORRHAGE [None]
